FAERS Safety Report 8487219-8 (Version None)
Quarter: 2012Q3

REPORT INFORMATION
  Report Type: 
  Country: None (occurrence: None)
  Receive Date: 20120705
  Receipt Date: 20120619
  Transmission Date: 20120928
  Serious: Yes (Death, Other)
  Sender: FDA-Public Use
  Company Number: JP-ROCHE-780879

PATIENT
  Sex: Male
  Weight: 62 kg

DRUGS (15)
  1. ACTEMRA [Suspect]
     Dosage: ROUTE: INTRAVENOUS DRIP FORM: INJECTION
     Route: 042
     Dates: start: 20080611, end: 20080611
  2. PREDNISOLONE SODIUM SUCCINATE INJ [Concomitant]
     Route: 048
  3. CYTOTEC [Concomitant]
     Route: 048
  4. PREDNISOLONE [Concomitant]
     Route: 048
     Dates: start: 20061205, end: 20120220
  5. PROGRAF [Concomitant]
     Route: 048
     Dates: start: 20080326, end: 20080805
  6. PREDNISOLONE SODIUM SUCCINATE INJ [Concomitant]
     Route: 048
  7. FOLIAMIN [Concomitant]
     Route: 048
  8. PREDNISOLONE [Concomitant]
     Route: 048
     Dates: start: 20060118, end: 20061204
  9. ACTEMRA [Suspect]
     Route: 042
     Dates: start: 20080710, end: 20120220
  10. PROGRAF [Concomitant]
     Route: 048
  11. VOLTAREN [Concomitant]
     Route: 048
  12. URSO 250 [Concomitant]
     Route: 048
  13. PREDNISOLONE SODIUM SUCCINATE INJ [Concomitant]
     Route: 041
  14. PREDNISOLONE [Concomitant]
     Route: 048
     Dates: start: 20051228, end: 20060117
  15. ACTEMRA [Suspect]
     Indication: RHEUMATOID ARTHRITIS
     Dosage: ROUTE: INTRAVENOUS DRIP FORM: INJECTION NOTE: 560-600 MG/4WEEKS
     Route: 041
     Dates: start: 20080514, end: 20091014

REACTIONS (4)
  - INTERSTITIAL LUNG DISEASE [None]
  - ACUTE RESPIRATORY FAILURE [None]
  - ANKLE FRACTURE [None]
  - PNEUMOTHORAX [None]
